FAERS Safety Report 20509178 (Version 1)
Quarter: 2022Q1

REPORT INFORMATION
  Report Type: Spontaneous
  Country: US (occurrence: US)
  Receive Date: 20220223
  Receipt Date: 20220223
  Transmission Date: 20220423
  Serious: Yes (Other)
  Sender: FDA-Public Use
  Company Number: US-GW PHARMA-202202USGW00816

PATIENT
  Sex: Male
  Weight: 24.1 kg

DRUGS (1)
  1. EPIDIOLEX [Suspect]
     Active Substance: CANNABIDIOL
     Indication: Lennox-Gastaut syndrome
     Dosage: 6.85 MG/KG/DAY, 165 MILLIGRAM, QD, FIRST SHIPPED ON 02-JUN-2021, 65 MG IN MORNING AND 100 MG IN EVEN
     Route: 048
     Dates: start: 202106

REACTIONS (4)
  - Seizure [Unknown]
  - Product supply issue [Unknown]
  - Product dose omission issue [Unknown]
  - Insurance issue [Unknown]
